FAERS Safety Report 8815112 (Version 1)
Quarter: 2012Q4

REPORT INFORMATION
  Report Type: 
  Country: US (occurrence: US)
  Receive Date: 20120928
  Receipt Date: 20120928
  Transmission Date: 20130627
  Serious: Yes (Other)
  Sender: FDA-Public Use
  Company Number: US-BAYER-2012-100221

PATIENT

DRUGS (1)
  1. BAYER EXTRA STRENGTH PM [Suspect]
     Dosage: bottle count 40s
     Route: 048

REACTIONS (2)
  - Drug dependence [None]
  - Drug dependence [None]
